FAERS Safety Report 9332635 (Version 1)
Quarter: 2013Q2

REPORT INFORMATION
  Report Type: Spontaneous
  Country: JP (occurrence: None)
  Receive Date: 20130603
  Receipt Date: 20130603
  Transmission Date: 20140414
  Serious: Yes (Other)
  Sender: FDA-Public Use
  Company Number: JP-20130053

PATIENT
  Age: 65 Year
  Sex: Male

DRUGS (3)
  1. LIPIODOL ULTRA FLUIDE (ETHIODIZED OIL) [Suspect]
     Indication: THERAPEUTIC EMBOLISATION
     Route: 013
  2. EPIRUCIN [Concomitant]
  3. GELPART [Concomitant]

REACTIONS (2)
  - Biloma [None]
  - Off label use [None]
